FAERS Safety Report 6895398-9 (Version None)
Quarter: 2010Q3

REPORT INFORMATION
  Report Type: 
  Country: None (occurrence: None)
  Receive Date: 20100802
  Receipt Date: 20100728
  Transmission Date: 20110219
  Serious: Yes (Other)
  Sender: FDA-Public Use
  Company Number: US-PFIZER INC-2009196827

PATIENT
  Sex: Male
  Weight: 108 kg

DRUGS (10)
  1. CELEBREX [Suspect]
     Indication: ARTHRITIS
     Dosage: 200 MG, 1X/DAY
     Route: 048
  2. CELEBREX [Suspect]
     Indication: BONE DISORDER
     Dosage: 200 MG, 2X/DAY
     Dates: start: 20080901
  3. CELEBREX [Suspect]
     Indication: SKELETAL INJURY
     Dosage: UNK
     Dates: start: 20090101
  4. CELEBREX [Suspect]
     Indication: ORTHOPEDIC PROCEDURE
  5. LIPITOR [Suspect]
     Indication: HYPERTENSION
     Dosage: 40 MG, 1X/DAY
     Route: 048
     Dates: start: 20090301
  6. LIPITOR [Suspect]
     Indication: LOW DENSITY LIPOPROTEIN INCREASED
  7. LIPITOR [Suspect]
     Indication: HIGH DENSITY LIPOPROTEIN DECREASED
  8. LIPITOR [Suspect]
     Indication: BLOOD TRIGLYCERIDES INCREASED
  9. VALSARTAN [Concomitant]
     Dosage: UNK
  10. ACETYLSALICYLIC ACID [Concomitant]
     Dosage: 81 MG, UNK

REACTIONS (9)
  - AORTIC VALVE DISEASE [None]
  - ASTHENIA [None]
  - CARDIAC MURMUR [None]
  - CARDIAC VALVE DISEASE [None]
  - HEART VALVE CALCIFICATION [None]
  - MUSCLE SPASMS [None]
  - MYALGIA [None]
  - MYOCARDIAL INFARCTION [None]
  - WEIGHT DECREASED [None]
